FAERS Safety Report 16853854 (Version 1)
Quarter: 2019Q3

REPORT INFORMATION
  Report Type: Spontaneous
  Country: FR (occurrence: FR)
  Receive Date: 20190926
  Receipt Date: 20190926
  Transmission Date: 20191005
  Serious: Yes (Hospitalization)
  Sender: FDA-Public Use
  Company Number: FR-TEVA-2019-FR-1110900

PATIENT
  Age: 65 Year
  Sex: Male

DRUGS (4)
  1. MACROGOL (STEARATE DE) [Concomitant]
  2. DIFFU K, GELULE [Concomitant]
     Active Substance: POTASSIUM CHLORIDE
  3. LASILIX SPECIAL 500 MG, COMPRIME SECABLE [Concomitant]
     Active Substance: FUROSEMIDE
  4. PROPRANOLOL [Suspect]
     Active Substance: PROPRANOLOL HYDROCHLORIDE
     Indication: VARICES OESOPHAGEAL
     Dosage: 80MG/ DAYS
     Route: 048
     Dates: start: 20190703

REACTIONS (2)
  - Hypertension [Recovering/Resolving]
  - Bradycardia [Recovering/Resolving]

NARRATIVE: CASE EVENT DATE: 20190825
